FAERS Safety Report 7693150-8 (Version None)
Quarter: 2011Q3

REPORT INFORMATION
  Report Type: 
  Country: None (occurrence: None)
  Receive Date: 20110819
  Receipt Date: 20110804
  Transmission Date: 20111222
  Serious: No
  Sender: FDA-Public Use
  Company Number: US-B.I. PHARMACEUTICALS,INC./RIDGEFIELD-2011-BP-18031BP

PATIENT
  Sex: Male
  Weight: 124.5 kg

DRUGS (5)
  1. CARVEDILOL [Concomitant]
  2. PRADAXA [Suspect]
     Indication: ATRIAL FIBRILLATION
     Dosage: 300 MG
     Route: 048
     Dates: start: 20110501, end: 20110628
  3. ASPIRIN [Concomitant]
     Dosage: 81 UNK
  4. PREVACID [Concomitant]
  5. FERROUS SULFATE TAB [Concomitant]

REACTIONS (1)
  - ANAEMIA [None]
